FAERS Safety Report 25374456 (Version 2)
Quarter: 2025Q2

REPORT INFORMATION
  Report Type: Spontaneous
  Country: DE (occurrence: DE)
  Receive Date: 20250529
  Receipt Date: 20250627
  Transmission Date: 20250717
  Serious: Yes (Hospitalization, Other)
  Sender: TAKEDA
  Company Number: DE-ABBVIE-6277199

PATIENT
  Age: 18 Year
  Sex: Female

DRUGS (10)
  1. ENTYVIO [Suspect]
     Active Substance: VEDOLIZUMAB
     Indication: Product used for unknown indication
  2. SKYRIZI [Suspect]
     Active Substance: RISANKIZUMAB-RZAA
     Indication: Colitis
  3. SKYRIZI [Suspect]
     Active Substance: RISANKIZUMAB-RZAA
     Indication: Terminal ileitis
  4. SKYRIZI [Suspect]
     Active Substance: RISANKIZUMAB-RZAA
     Indication: Crohn^s disease
  5. INFLIXIMAB [Suspect]
     Active Substance: INFLIXIMAB
     Indication: Product used for unknown indication
     Dosage: 100 MILLIGRAM, Q4WEEKS
  6. HUMIRA [Suspect]
     Active Substance: ADALIMUMAB
     Indication: Colitis ulcerative
  7. PREDNISONE [Concomitant]
     Active Substance: PREDNISONE
  8. PANTOPRAZOLE SODIUM [Concomitant]
     Active Substance: PANTOPRAZOLE SODIUM
     Dosage: 40 MILLIGRAM, QD
  9. ACETAMINOPHEN [Concomitant]
     Active Substance: ACETAMINOPHEN
  10. FOLIC ACID [Concomitant]
     Active Substance: FOLIC ACID
     Dosage: 5 MILLIGRAM, QD

REACTIONS (32)
  - Lower gastrointestinal haemorrhage [Unknown]
  - Alopecia [Recovering/Resolving]
  - Enteritis [Unknown]
  - Ileus [Unknown]
  - Colitis [Unknown]
  - Infection [Unknown]
  - Ileocaecal resection [Unknown]
  - Infection [Unknown]
  - Pyrexia [Unknown]
  - Viral infection [Unknown]
  - Ileal stenosis [Unknown]
  - Intracranial hypotension [Unknown]
  - Maternal exposure during pregnancy [Unknown]
  - Live birth [Unknown]
  - Abdominal pain [Unknown]
  - Pulmonary embolism [Unknown]
  - Peritonitis [Unknown]
  - Blood loss anaemia [Unknown]
  - Psoriasis [Unknown]
  - Anal incontinence [Unknown]
  - Personal relationship issue [Unknown]
  - Impaired work ability [Unknown]
  - Sleep disorder [Unknown]
  - Asthenia [Unknown]
  - Emotional distress [Unknown]
  - Body dysmorphic disorder [Unknown]
  - Sexual dysfunction [Unknown]
  - Arthralgia [Unknown]
  - Granuloma [Unknown]
  - Colitis ulcerative [Unknown]
  - Proctitis [Unknown]
  - Enteritis [Unknown]

NARRATIVE: CASE EVENT DATE: 20230101
